FAERS Safety Report 19455575 (Version 1)
Quarter: 2021Q2

REPORT INFORMATION
  Report Type: Spontaneous
  Country: AL (occurrence: AL)
  Receive Date: 20210623
  Receipt Date: 20210623
  Transmission Date: 20210717
  Serious: Yes (Hospitalization)
  Sender: FDA-Public Use
  Company Number: None

PATIENT
  Age: 74 Year
  Sex: Male

DRUGS (21)
  1. LIPITOR [Concomitant]
     Active Substance: ATORVASTATIN CALCIUM
  2. PREDNISONE. [Concomitant]
     Active Substance: PREDNISONE
  3. BUMEX [Concomitant]
     Active Substance: BUMETANIDE
  4. MYCOPHENOLATE [Concomitant]
     Active Substance: MYCOPHENOLIC ACID
  5. FOLIC ACID. [Concomitant]
     Active Substance: FOLIC ACID
  6. CALCIUM [Concomitant]
     Active Substance: CALCIUM
  7. ZORTRESS [Concomitant]
     Active Substance: EVEROLIMUS
  8. ASPRIN [Concomitant]
     Active Substance: ASPIRIN
  9. MAG OX [Concomitant]
     Active Substance: MAGNESIUM OXIDE
  10. PHOSPHA [Concomitant]
  11. CARDURA [Concomitant]
     Active Substance: DOXAZOSIN MESYLATE
  12. FOSAMAX [Concomitant]
     Active Substance: ALENDRONATE SODIUM
  13. HYDRALAZINE [Concomitant]
     Active Substance: HYDRALAZINE HYDROCHLORIDE
  14. LOSARTAN. [Concomitant]
     Active Substance: LOSARTAN
  15. MULTVITAMIN [Concomitant]
  16. PRANDIN [Concomitant]
     Active Substance: REPAGLINIDE
  17. TOPROL XL [Concomitant]
     Active Substance: METOPROLOL SUCCINATE
  18. ULORIC [Concomitant]
     Active Substance: FEBUXOSTAT
  19. TACROLIMUS. [Suspect]
     Active Substance: TACROLIMUS
     Indication: RENAL TRANSPLANT
     Route: 048
     Dates: start: 20210513
  20. FLOMAX [Concomitant]
     Active Substance: TAMSULOSIN HYDROCHLORIDE
  21. LEVEMIR [Concomitant]
     Active Substance: INSULIN DETEMIR

REACTIONS (1)
  - Hospitalisation [None]

NARRATIVE: CASE EVENT DATE: 20210610
